FAERS Safety Report 5564537-4 (Version None)
Quarter: 2007Q4

REPORT INFORMATION
  Report Type: 
  Country: None (occurrence: None)
  Receive Date: 20071218
  Receipt Date: 20071218
  Transmission Date: 20080405
  Serious: Yes (Hospitalization, Other)
  Sender: FDA-Public Use
  Company Number: PHHO2005DK06629

PATIENT
  Age: 61 Year
  Sex: Female
  Weight: 73 kg

DRUGS (4)
  1. VITAMIN D [Concomitant]
     Indication: OSTEOPOROTIC FRACTURE
  2. CALCIUM CARBONATE [Concomitant]
     Indication: OSTEOPOROTIC FRACTURE
  3. ZOLEDRONIC ACID [Suspect]
     Indication: OSTEOPOROTIC FRACTURE
     Dosage: DOUBLE-BLIND
     Route: 042
     Dates: start: 20040505
  4. ZOLEDRONIC ACID [Suspect]
     Dosage: 5MG, ONCE YEARLY

REACTIONS (5)
  - ANAEMIA [None]
  - ARTHRALGIA [None]
  - HIP ARTHROPLASTY [None]
  - NECROSIS [None]
  - THERAPEUTIC PROCEDURE [None]
